FAERS Safety Report 7329121-0 (Version None)
Quarter: 2011Q1

REPORT INFORMATION
  Report Type: 
  Country: None (occurrence: None)
  Receive Date: 20110303
  Receipt Date: 20110225
  Transmission Date: 20110831
  Serious: Yes (Hospitalization)
  Sender: FDA-Public Use
  Company Number: IT-TEVA-269114ISR

PATIENT
  Sex: Female

DRUGS (3)
  1. LEVOTHYROXINE [Concomitant]
     Indication: HYPOTHYROIDISM
     Route: 048
  2. AMISULPRIDE [Concomitant]
  3. ATENOLOL [Suspect]
     Indication: PALPITATIONS
     Route: 048
     Dates: start: 20101014, end: 20101014

REACTIONS (2)
  - VERTIGO [None]
  - TREMOR [None]
